FAERS Safety Report 22020562 (Version 2)
Quarter: 2023Q1

REPORT INFORMATION
  Report Type: Spontaneous
  Country: US (occurrence: US)
  Receive Date: 20230222
  Receipt Date: 20230321
  Transmission Date: 20230418
  Serious: No
  Sender: FDA-Public Use
  Company Number: US-PFIZER INC-PV202300033434

PATIENT
  Age: 73 Year
  Sex: Female

DRUGS (1)
  1. XELJANZ XR [Suspect]
     Active Substance: TOFACITINIB CITRATE
     Indication: Rheumatoid arthritis
     Dosage: 11 MG, 1X/DAY
     Route: 048
     Dates: start: 20230127

REACTIONS (9)
  - Product dose omission issue [Unknown]
  - Upper respiratory tract infection [Not Recovered/Not Resolved]
  - Cough [Not Recovered/Not Resolved]
  - COVID-19 [Unknown]
  - Dyspnoea [Unknown]
  - Fluid retention [Unknown]
  - Peripheral swelling [Unknown]
  - Depressed mood [Unknown]
  - Somnolence [Unknown]

NARRATIVE: CASE EVENT DATE: 20230101
